FAERS Safety Report 23751689 (Version 1)
Quarter: 2024Q2

REPORT INFORMATION
  Report Type: Spontaneous
  Country: US (occurrence: None)
  Receive Date: 20240416
  Receipt Date: 20240416
  Transmission Date: 20240716
  Serious: No
  Sender: FDA-Public Use
  Company Number: None

PATIENT
  Age: 32 Year
  Sex: Female
  Weight: 70.65 kg

DRUGS (1)
  1. ZEPBOUND [Suspect]
     Active Substance: TIRZEPATIDE
     Indication: Weight decreased
     Dates: start: 20240123, end: 20240413

REACTIONS (5)
  - Sleep deficit [None]
  - Fatigue [None]
  - Depression [None]
  - Malaise [None]
  - Suicidal ideation [None]

NARRATIVE: CASE EVENT DATE: 20240401
